FAERS Safety Report 9176965 (Version 1)
Quarter: 2013Q1

REPORT INFORMATION
  Report Type: Spontaneous
  Country: IT (occurrence: IT)
  Receive Date: 20130321
  Receipt Date: 20130321
  Transmission Date: 20140127
  Serious: Yes (Death)
  Sender: FDA-Public Use
  Company Number: IT-JNJFOC-20090802639

PATIENT
  Age: 80 Year
  Sex: Female
  Weight: 66 kg

DRUGS (15)
  1. IBUPROFEN [Suspect]
     Indication: PRODUCT USED FOR UNKNOWN INDICATION
     Route: 048
  2. FOSAMAX [Suspect]
     Indication: PRODUCT USED FOR UNKNOWN INDICATION
     Route: 048
     Dates: end: 20021226
  3. DIGOXIN [Concomitant]
     Route: 042
  4. OMEPRAZOLE [Concomitant]
     Route: 042
  5. FLUCONAZOLE [Concomitant]
     Route: 065
  6. SALBUTAMOL [Concomitant]
     Route: 065
  7. IPRATROPIUM [Concomitant]
     Route: 065
  8. SERETIDE [Concomitant]
     Route: 065
  9. PARACETAMOL [Concomitant]
     Route: 048
  10. HYDROCORTISONE [Concomitant]
     Route: 042
  11. LISINOPRIL [Concomitant]
     Route: 048
  12. FLUOXETINE [Concomitant]
     Route: 048
  13. WARFARIN [Concomitant]
     Route: 065
  14. VANCOMYCIN [Concomitant]
     Route: 042
  15. OCTREOTIDE [Concomitant]
     Route: 065

REACTIONS (2)
  - Gastroenteritis [Fatal]
  - Gastric ulcer perforation [Fatal]
